FAERS Safety Report 13968518 (Version 2)
Quarter: 2017Q3

REPORT INFORMATION
  Report Type: Spontaneous
  Country: JP (occurrence: JP)
  Receive Date: 20170914
  Receipt Date: 20170922
  Transmission Date: 20171128
  Serious: Yes (Hospitalization, Other)
  Sender: FDA-Public Use
  Company Number: JP-JNJFOC-20170909601

PATIENT
  Age: 68 Year
  Sex: Female

DRUGS (2)
  1. TRAMCET [Suspect]
     Active Substance: ACETAMINOPHEN\TRAMADOL
     Indication: PRODUCT USED FOR UNKNOWN INDICATION
     Route: 048
     Dates: start: 2017
  2. TRAMCET [Suspect]
     Active Substance: ACETAMINOPHEN\TRAMADOL
     Indication: PRODUCT USED FOR UNKNOWN INDICATION
     Route: 048
     Dates: start: 201708, end: 2017

REACTIONS (2)
  - Pancytopenia [Recovering/Resolving]
  - Hospitalisation [Unknown]

NARRATIVE: CASE EVENT DATE: 2017
